FAERS Safety Report 5214196-5 (Version None)
Quarter: 2007Q1

REPORT INFORMATION
  Report Type: 
  Country: None (occurrence: None)
  Receive Date: 20070116
  Receipt Date: 20070105
  Transmission Date: 20070707
  Serious: Yes (Other)
  Sender: FDA-Public Use
  Company Number: 2006BI018828

PATIENT
  Age: 64 Year
  Sex: Female
  Weight: 42.1845 kg

DRUGS (2)
  1. AVONEX [Suspect]
     Indication: MULTIPLE SCLEROSIS
     Dosage: 30 UG; QW; IM
     Route: 030
     Dates: start: 20040501, end: 20070103
  2. ACTOSE [Concomitant]

REACTIONS (2)
  - INJECTION SITE PAIN [None]
  - WEIGHT DECREASED [None]
